FAERS Safety Report 17407616 (Version 1)
Quarter: 2020Q1

REPORT INFORMATION
  Report Type: Spontaneous
  Country: NO (occurrence: NO)
  Receive Date: 20200212
  Receipt Date: 20200212
  Transmission Date: 20200409
  Serious: Yes (Death, Hospitalization)
  Sender: FDA-Public Use
  Company Number: NO-ROCHE-2539403

PATIENT
  Age: 70 Year
  Sex: Male

DRUGS (25)
  1. GARAMYCIN [Concomitant]
     Active Substance: GENTAMICIN SULFATE
     Route: 042
  2. NOVANTRONE [Concomitant]
     Active Substance: MITOXANTRONE HYDROCHLORIDE
     Indication: PRODUCT USED FOR UNKNOWN INDICATION
     Dosage: 1 DF, TIW
     Route: 065
     Dates: start: 20090611, end: 20090723
  3. GARAMYCIN [Concomitant]
     Active Substance: GENTAMICIN SULFATE
     Indication: PNEUMONIA BACTERIAL
     Route: 042
     Dates: start: 20090916
  4. FLUCONAZOLE. [Suspect]
     Active Substance: FLUCONAZOLE
     Indication: PRODUCT USED FOR UNKNOWN INDICATION
     Route: 065
     Dates: start: 20090916
  5. NEULASTA [Interacting]
     Active Substance: PEGFILGRASTIM
     Dosage: UNK
     Route: 065
  6. SENDOXAN [Concomitant]
     Active Substance: CYCLOPHOSPHAMIDE
     Indication: PRODUCT USED FOR UNKNOWN INDICATION
     Route: 065
  7. MERONEM [Concomitant]
     Active Substance: MEROPENEM
     Indication: PRODUCT USED FOR UNKNOWN INDICATION
     Route: 065
     Dates: start: 20090919
  8. ETOPOSIDE. [Concomitant]
     Active Substance: ETOPOSIDE
     Dosage: 1 DF,
     Route: 065
     Dates: start: 20090909, end: 20090909
  9. MABTHERA [Suspect]
     Active Substance: RITUXIMAB
     Indication: PRODUCT USED FOR UNKNOWN INDICATION
     Dosage: UNK, Q3W (TOTAL OF 3 TREATMENTS)
     Route: 065
     Dates: start: 20090611
  10. MITOXANTRONE HYDROCHLORIDE. [Suspect]
     Active Substance: MITOXANTRONE HYDROCHLORIDE
     Indication: PRODUCT USED FOR UNKNOWN INDICATION
     Dosage: Q3W
     Route: 065
     Dates: start: 20090611, end: 20090723
  11. NEULASTA [Interacting]
     Active Substance: PEGFILGRASTIM
     Dosage: UNK
     Route: 065
  12. DIFLUCAN [Concomitant]
     Active Substance: FLUCONAZOLE
     Indication: PRODUCT USED FOR UNKNOWN INDICATION
     Route: 065
  13. VINCRISTINE [Concomitant]
     Active Substance: VINCRISTINE
     Indication: DIFFUSE LARGE B-CELL LYMPHOMA
     Dosage: Q3W
     Route: 065
     Dates: start: 20090611, end: 20090723
  14. RITUXIMAB. [Suspect]
     Active Substance: RITUXIMAB
     Indication: PRODUCT USED FOR UNKNOWN INDICATION
     Dosage: Q3W (TOTAL OF 3 TREATMENTS)
     Route: 065
     Dates: start: 20090611
  15. CYCLOPHOSPHAMIDE. [Interacting]
     Active Substance: CYCLOPHOSPHAMIDE
     Indication: DIFFUSE LARGE B-CELL LYMPHOMA
     Dosage: Q3W (TOTAL OF 3 TREATMENTS)
     Route: 065
     Dates: start: 20090611, end: 20090723
  16. ETOPOSIDE. [Concomitant]
     Active Substance: ETOPOSIDE
     Indication: DIFFUSE LARGE B-CELL LYMPHOMA
     Dosage: UNK UNK, UNK
     Route: 065
     Dates: start: 200909, end: 200909
  17. BENZYLPENICILLIN [Concomitant]
     Active Substance: PENICILLIN G
     Indication: PNEUMONIA BACTERIAL
     Route: 042
  18. BACTRIM [Concomitant]
     Active Substance: SULFAMETHOXAZOLE\TRIMETHOPRIM
     Indication: PRODUCT USED FOR UNKNOWN INDICATION
     Route: 065
     Dates: start: 20091001
  19. PREDNISOLONE. [Concomitant]
     Active Substance: PREDNISOLONE
     Indication: PRODUCT USED FOR UNKNOWN INDICATION
     Dosage: 1 DF, TIW
     Route: 065
     Dates: start: 20090611, end: 20090909
  20. SULFAMETHOXAZOLE/TRIMETHOPRIM [Concomitant]
     Active Substance: SULFAMETHOXAZOLE\TRIMETHOPRIM
     Indication: PRODUCT USED FOR UNKNOWN INDICATION
     Route: 065
  21. CYTARABINE. [Concomitant]
     Active Substance: CYTARABINE
     Indication: DIFFUSE LARGE B-CELL LYMPHOMA
     Dosage: 1 DF,
     Route: 065
     Dates: start: 20090909, end: 20090909
  22. NEULASTA [Interacting]
     Active Substance: PEGFILGRASTIM
     Indication: DIFFUSE LARGE B-CELL LYMPHOMA
     Dosage: , Q3W
     Route: 065
  23. VINCRISTINE SULFATE. [Concomitant]
     Active Substance: VINCRISTINE SULFATE
     Indication: PRODUCT USED FOR UNKNOWN INDICATION
     Route: 065
     Dates: end: 20090723
  24. MEROPENEM. [Concomitant]
     Active Substance: MEROPENEM
     Indication: PRODUCT USED FOR UNKNOWN INDICATION
     Route: 065
  25. NOVANTRONE [Concomitant]
     Active Substance: MITOXANTRONE HYDROCHLORIDE
     Indication: DIFFUSE LARGE B-CELL LYMPHOMA
     Dosage: Q3W (TOTAL OF 3 TREATMENTS)
     Route: 065
     Dates: start: 20090611, end: 20090723

REACTIONS (5)
  - Lung opacity [Fatal]
  - Pneumocystis jirovecii pneumonia [Unknown]
  - Respiratory failure [Fatal]
  - Pneumonitis [Unknown]
  - Drug interaction [Unknown]

NARRATIVE: CASE EVENT DATE: 20090809
